FAERS Safety Report 13243835 (Version 1)
Quarter: 2017Q1

REPORT INFORMATION
  Report Type: Not Available
  Country: None (occurrence: US)
  Receive Date: 20170216
  Receipt Date: 20170216
  Transmission Date: 20170428
  Serious: Yes (Other)
  Sender: FDA-Public Use
  Company Number: US-AKORN-48057

PATIENT
  Age: 73 Year
  Sex: Male

DRUGS (1)
  1. NEMBUTAL SODIUM [Suspect]
     Active Substance: PENTOBARBITAL SODIUM

REACTIONS (2)
  - Drug hypersensitivity [Recovered/Resolved]
  - Mental disorder [Recovered/Resolved]
